FAERS Safety Report 8129333-2 (Version None)
Quarter: 2012Q1

REPORT INFORMATION
  Report Type: 
  Country: None (occurrence: None)
  Receive Date: 20120210
  Receipt Date: 20120203
  Transmission Date: 20120608
  Serious: Yes (Hospitalization)
  Sender: FDA-Public Use
  Company Number: US-JNJFOC-20120204904

PATIENT

DRUGS (1)
  1. NUCYNTA [Suspect]
     Indication: PAIN
     Route: 048

REACTIONS (1)
  - HOSPITALISATION [None]
